FAERS Safety Report 17905248 (Version 1)
Quarter: 2020Q2

REPORT INFORMATION
  Report Type: Spontaneous
  Country: US (occurrence: US)
  Receive Date: 20200616
  Receipt Date: 20200616
  Transmission Date: 20200714
  Serious: No
  Sender: FDA-Public Use
  Company Number: US-ROCHE-2565720

PATIENT
  Sex: Female

DRUGS (3)
  1. KINERET [Concomitant]
     Active Substance: ANAKINRA
  2. ACTEMRA [Suspect]
     Active Substance: TOCILIZUMAB
     Indication: PRODUCT USED FOR UNKNOWN INDICATION
     Route: 065
  3. ILARIS [Concomitant]
     Active Substance: CANAKINUMAB

REACTIONS (1)
  - Condition aggravated [Unknown]
